FAERS Safety Report 5651544-6 (Version None)
Quarter: 2008Q1

REPORT INFORMATION
  Report Type: 
  Country: None (occurrence: None)
  Receive Date: 20080305
  Receipt Date: 20080228
  Transmission Date: 20080703
  Serious: Yes (Other)
  Sender: FDA-Public Use
  Company Number: US-GILEAD-2008-0015518

PATIENT
  Sex: Female
  Weight: 83.082 kg

DRUGS (8)
  1. LETAIRIS [Suspect]
     Indication: PULMONARY HYPERTENSION
     Route: 048
     Dates: start: 20071001
  2. PREDNISONE TAB [Concomitant]
     Indication: SARCOIDOSIS
     Route: 048
  3. DIAZEPAM [Concomitant]
     Indication: ANXIETY
     Route: 048
     Dates: start: 19930101
  4. SENSIPAR [Concomitant]
     Route: 048
     Dates: start: 20060101
  5. REGLAN [Concomitant]
     Route: 048
     Dates: start: 20060101
  6. RENAGEL [Concomitant]
     Indication: MEDICAL DIET
     Route: 048
     Dates: start: 20050101
  7. NEXIUM [Concomitant]
     Indication: GASTROOESOPHAGEAL REFLUX DISEASE
     Route: 048
     Dates: start: 20060101
  8. ALBUTEROL [Concomitant]
     Indication: ASTHMA
     Dosage: 2 PUFFS
     Route: 055
     Dates: start: 19800101

REACTIONS (1)
  - PROCEDURAL HYPOTENSION [None]
